FAERS Safety Report 16825890 (Version 2)
Quarter: 2019Q4

REPORT INFORMATION
  Report Type: Spontaneous
  Country: JP (occurrence: JP)
  Receive Date: 20190919
  Receipt Date: 20191001
  Transmission Date: 20200122
  Serious: No
  Sender: FDA-Public Use
  Company Number: JP-BEH-2019106555

PATIENT
  Age: 90 Year
  Sex: Male
  Weight: 50 kg

DRUGS (6)
  1. ELNEOPA NO.2 [Concomitant]
     Active Substance: AMINO ACIDS\DEXTROSE\ELECTROLYTES NOS\MINERALS\VITAMINS
  2. PRODIF [Concomitant]
     Active Substance: FOSFLUCONAZOLE
  3. BROMHEXINE HYDROCHLORIDE [Concomitant]
     Active Substance: BROMHEXINE HYDROCHLORIDE
  4. ALBUMINAR-25 [Suspect]
     Active Substance: ALBUMIN HUMAN
     Indication: PERITONITIS
     Dosage: 2 VIALS 1 DAY
     Route: 042
     Dates: start: 20190806, end: 20190808
  5. TAZOPIPE [Concomitant]
     Active Substance: PIPERACILLIN SODIUM\TAZOBACTAM SODIUM
  6. OMEPRAZOLE SODIUM [Concomitant]
     Active Substance: OMEPRAZOLE SODIUM

REACTIONS (4)
  - Body temperature increased [Unknown]
  - Administration site erythema [Unknown]
  - Chills [Recovering/Resolving]
  - Blood pressure increased [Recovering/Resolving]

NARRATIVE: CASE EVENT DATE: 20190808
